FAERS Safety Report 4921278-1 (Version None)
Quarter: 2006Q1

REPORT INFORMATION
  Report Type: 
  Country: None (occurrence: None)
  Receive Date: 20060224
  Receipt Date: 20051128
  Transmission Date: 20060701
  Serious: Yes (Other)
  Sender: FDA-Public Use
  Company Number: PHFR2005IE03896

PATIENT
  Age: 44 Year
  Sex: Female

DRUGS (6)
  1. CLOZARIL [Suspect]
     Indication: SCHIZOPHRENIA
     Dosage: 650 MG/DAY
     Route: 048
     Dates: start: 20050327
  2. TEGRETOL [Concomitant]
     Indication: SCHIZOPHRENIA
     Dosage: 100 MG, TID
     Route: 048
  3. CLONAZEPAM [Concomitant]
     Indication: SCHIZOPHRENIA
     Dosage: 2 MG, TID
     Route: 048
  4. CIPRAMIL                                /NET/ [Concomitant]
     Indication: AFFECTIVE DISORDER
     Dosage: 80 MG, QD
     Route: 048
  5. DALMANE [Concomitant]
     Indication: INSOMNIA
     Dosage: 15 MG NOCTE
     Route: 048
  6. SOLIAN [Concomitant]
     Indication: AFFECTIVE DISORDER
     Dosage: 800 MG, BID

REACTIONS (1)
  - ELECTROCARDIOGRAM QT CORRECTED INTERVAL PROLONGED [None]
